FAERS Safety Report 20429871 (Version 1)
Quarter: 2022Q1

REPORT INFORMATION
  Report Type: Report from Study
  Country: GB (occurrence: GB)
  Receive Date: 20220204
  Receipt Date: 20220204
  Transmission Date: 20220423
  Serious: Yes (Other)
  Sender: FDA-Public Use
  Company Number: GB-SERVIER-S18010202

PATIENT

DRUGS (14)
  1. ONCASPAR [Suspect]
     Active Substance: PEGASPARGASE
     Indication: Acute lymphocytic leukaemia
     Dosage: 2000 UI ONCE DAILY ON D4 AND D18
     Route: 042
     Dates: start: 20170309, end: 20170323
  2. TN UNSPECIFIED [Concomitant]
     Indication: Acute lymphocytic leukaemia
     Dosage: 61MG, QD
     Route: 042
     Dates: start: 20170306, end: 20170327
  3. TN UNSPECIFIED [Concomitant]
     Indication: Acute lymphocytic leukaemia
     Dosage: 2MG,DAILY
     Route: 042
     Dates: start: 20170306, end: 20170327
  4. TN UNSPECIFIED [Concomitant]
     Indication: Acute lymphocytic leukaemia
     Dosage: 12.5 MG, QD
     Route: 042
     Dates: start: 20170321, end: 20170321
  5. AMBISOME [Concomitant]
     Active Substance: AMPHOTERICIN B
     Indication: Antifungal prophylaxis
     Dosage: 100MG, QD ON MON/WED/FRI
     Route: 042
     Dates: start: 20170308, end: 20170505
  6. TN UNSPECIFIED [Concomitant]
     Indication: Antifungal treatment
     Dosage: 1ML, QID
     Route: 048
     Dates: start: 20170324, end: 20170510
  7. TN UNSPECIFIED [Concomitant]
     Indication: Antibiotic prophylaxis
     Dosage: 10 ML, QID
     Route: 048
     Dates: start: 20170224, end: 20170510
  8. TN UNSPECIFIED [Concomitant]
     Indication: Antiemetic supportive care
     Dosage: 8 MG, BID
     Route: 048
     Dates: start: 20170324, end: 20170424
  9. TN UNSPECIFIED [Concomitant]
     Indication: Gastrooesophageal reflux disease
     Dosage: 30 MG, QD
     Route: 048
     Dates: start: 20170227, end: 20170510
  10. TN UNSPECIFIED [Concomitant]
     Indication: Hyperuricaemia
     Dosage: 300 MG, QD
     Route: 048
     Dates: start: 20170304, end: 20170405
  11. TN UNSPECIFIED [Concomitant]
     Indication: Infection prophylaxis
     Dosage: 400MG, BID
     Route: 048
     Dates: start: 20170303, end: 20171221
  12. TN UNSPECIFIED [Concomitant]
     Indication: Infection prophylaxis
     Dosage: 480 MG
     Route: 048
     Dates: start: 20170216, end: 201706
  13. TN UNSPECIFIED [Concomitant]
     Indication: Pain
     Dosage: 1G, QID
     Route: 048
     Dates: start: 20170224, end: 20170424
  14. TN UNSPECIFIED [Concomitant]
     Indication: Prophylaxis of nausea and vomiting
     Dosage: 50 MG, TID
     Route: 048
     Dates: start: 20170306, end: 20170424

REACTIONS (2)
  - Vascular access complication [Recovered/Resolved]
  - Deep vein thrombosis [Recovered/Resolved]

NARRATIVE: CASE EVENT DATE: 20170329
